FAERS Safety Report 6215264-1 (Version None)
Quarter: 2009Q2

REPORT INFORMATION
  Report Type: 
  Country: None (occurrence: None)
  Receive Date: 20090604
  Receipt Date: 20090527
  Transmission Date: 20091009
  Serious: Yes (Other)
  Sender: FDA-Public Use
  Company Number: US-ASTRAZENECA-2009UW13418

PATIENT
  Age: 44 Year
  Sex: Female

DRUGS (6)
  1. SYMBICORT [Suspect]
     Dosage: 640/4.5 UG TWO PUFFS BID
     Route: 055
  2. PROTONIX [Concomitant]
  3. PREMPRO [Concomitant]
  4. ZYRTEC-D 12 HOUR [Concomitant]
  5. LEVOXYL [Concomitant]
  6. SINGULAIR [Concomitant]

REACTIONS (2)
  - HYSTERECTOMY [None]
  - MAMMOPLASTY [None]
